FAERS Safety Report 13711134 (Version 1)
Quarter: 2017Q3

REPORT INFORMATION
  Report Type: Spontaneous
  Country: US (occurrence: US)
  Receive Date: 20170703
  Receipt Date: 20170703
  Transmission Date: 20171127
  Serious: Yes (Hospitalization)
  Sender: FDA-Public Use
  Company Number: US-BEH-2017081670

PATIENT
  Age: 31 Year
  Sex: Female
  Weight: 94.33 kg

DRUGS (17)
  1. LMX                                /00033401/ [Concomitant]
  2. SODIUM CHLORIDE. [Concomitant]
     Active Substance: SODIUM CHLORIDE
  3. EPINEPHRINE. [Concomitant]
     Active Substance: EPINEPHRINE
  4. ASPIRIN. [Concomitant]
     Active Substance: ASPIRIN
  5. LASIX [Concomitant]
     Active Substance: FUROSEMIDE
  6. ZYRTEC [Concomitant]
     Active Substance: CETIRIZINE HYDROCHLORIDE
  7. ZOMIG [Concomitant]
     Active Substance: ZOLMITRIPTAN
  8. ZANTAC [Concomitant]
     Active Substance: RANITIDINE HYDROCHLORIDE
  9. MECLIZINE [Concomitant]
     Active Substance: MECLIZINE HYDROCHLORIDE
  10. ZEMAIRA [Suspect]
     Active Substance: .ALPHA.1-PROTEINASE INHIBITOR HUMAN
     Dosage: UNK
     Route: 042
  11. DIPHENHYDRAMINE. [Concomitant]
     Active Substance: DIPHENHYDRAMINE
  12. KLONOPIN [Concomitant]
     Active Substance: CLONAZEPAM
  13. HYDROCODONE W/APAP                 /00607101/ [Concomitant]
  14. TOPAMAX [Concomitant]
     Active Substance: TOPIRAMATE
  15. CITALOPRAM [Concomitant]
     Active Substance: CITALOPRAM HYDROBROMIDE
  16. LORATADINE. [Concomitant]
     Active Substance: LORATADINE
  17. ZEMAIRA [Suspect]
     Active Substance: .ALPHA.1-PROTEINASE INHIBITOR HUMAN
     Indication: ALPHA-1 ANTI-TRYPSIN DEFICIENCY
     Dosage: 60 MG/KG, UNK
     Route: 042
     Dates: start: 20141022

REACTIONS (1)
  - Thrombosis [Recovered/Resolved]

NARRATIVE: CASE EVENT DATE: 20170501
